FAERS Safety Report 12401424 (Version 2)
Quarter: 2016Q2

REPORT INFORMATION
  Report Type: Spontaneous
  Country: BR (occurrence: BR)
  Receive Date: 20160525
  Receipt Date: 20160531
  Transmission Date: 20160815
  Serious: Yes (Hospitalization, Other)
  Sender: FDA-Public Use
  Company Number: BR-TORRENT-00003436

PATIENT
  Age: 36 Year
  Sex: Female
  Weight: 65 kg

DRUGS (4)
  1. CLONAZEPAM. [Concomitant]
     Active Substance: CLONAZEPAM
     Indication: ANXIETY
     Dosage: CLONAZEPAM 2 MG FOUR TIMES DAILY/ ORAL
     Route: 048
     Dates: start: 2011
  2. QUETIAPINE. [Concomitant]
     Active Substance: QUETIAPINE
     Indication: SCHIZOPHRENIA
     Dosage: ONE QUARTER OF QUETIAPINE 200 MG DAILY/ ORAL
     Route: 048
     Dates: start: 2013
  3. VENLIFT OD [Suspect]
     Active Substance: VENLAFAXINE HYDROCHLORIDE
     Indication: DEPRESSION
     Dosage: VENLIFT OD 75 MG ONCE DAILY/ ORAL
     Route: 048
     Dates: start: 2014
  4. ALPRAZOLAM. [Concomitant]
     Active Substance: ALPRAZOLAM
     Indication: INSOMNIA
     Dosage: ONCE DAILY/ ORAL
     Route: 048
     Dates: start: 2009

REACTIONS (2)
  - Knee operation [Recovered/Resolved]
  - Limb crushing injury [Recovered/Resolved]

NARRATIVE: CASE EVENT DATE: 20150521
